FAERS Safety Report 9248579 (Version 1)
Quarter: 2013Q1

REPORT INFORMATION
  Report Type: Spontaneous
  Country: US (occurrence: None)
  Receive Date: 20130305
  Receipt Date: 20130305
  Transmission Date: 20140127
  Serious: Yes (Other)
  Sender: FDA-Public Use
  Company Number: 163-21880-12093221

PATIENT
  Age: 62 Year
  Sex: Female

DRUGS (5)
  1. REVLIMID (LENALIDOMIDE) (CAPSULES) [Suspect]
     Indication: PLASMA CELL MYELOMA
     Route: 048
     Dates: start: 20111021
  2. ALLOPURINOL [Concomitant]
  3. AMLODIPINE BENAZEPRIL (AMLODIPINE MALEATE)W/BENAZEPRIL HYDROCHLORIDE [Concomitant]
  4. METOPROLOL (METOPROLOL) [Concomitant]
  5. CALCIUM (CALCIUM) [Concomitant]

REACTIONS (2)
  - Cough [None]
  - Malaise [None]
